FAERS Safety Report 6065796-4 (Version None)
Quarter: 2009Q1

REPORT INFORMATION
  Report Type: 
  Country: None (occurrence: None)
  Receive Date: 20090121
  Receipt Date: 20090121
  Transmission Date: 20090719
  Serious: Yes (Life-Threatening, Hospitalization, Disabling, Other)
  Sender: FDA-Public Use
  Company Number: None

PATIENT
  Age: 31 Year
  Sex: Male
  Weight: 113.3993 kg

DRUGS (1)
  1. VIAGRA [Suspect]
     Indication: ERECTILE DYSFUNCTION
     Dosage: 50MG DAILY
     Route: 048
     Dates: start: 20060428, end: 20060730

REACTIONS (20)
  - ABNORMAL BEHAVIOUR [None]
  - AMNESIA [None]
  - COMA [None]
  - CONSCIOUSNESS FLUCTUATING [None]
  - COORDINATION ABNORMAL [None]
  - DIALYSIS [None]
  - DISORIENTATION [None]
  - DRUG INEFFECTIVE [None]
  - DRUG TOXICITY [None]
  - FALL [None]
  - HYPERTENSION [None]
  - JUDGEMENT IMPAIRED [None]
  - LETHARGY [None]
  - MENTAL STATUS CHANGES [None]
  - METABOLIC DISORDER [None]
  - PANCREATITIS ACUTE [None]
  - RENAL FAILURE ACUTE [None]
  - RESPIRATORY DISTRESS [None]
  - RHABDOMYOLYSIS [None]
  - TYPE 2 DIABETES MELLITUS [None]
